FAERS Safety Report 13288176 (Version 1)
Quarter: 2017Q1

REPORT INFORMATION
  Report Type: Not Available
  Country: JP (occurrence: JP)
  Receive Date: 20170302
  Receipt Date: 20170302
  Transmission Date: 20170428
  Serious: Yes (Other)
  Sender: FDA-Public Use
  Company Number: JP--2017-JP-000009

PATIENT
  Age: 79 Year
  Sex: Female

DRUGS (1)
  1. METRONIDAZOLE BRAND UNSPECIFIED (VIVIMED) [Suspect]
     Active Substance: METRONIDAZOLE
     Indication: CLOSTRIDIUM DIFFICILE COLITIS
     Dosage: 500 MG EVERY 8 H

REACTIONS (1)
  - Drug ineffective [Recovered/Resolved]
